APPROVED DRUG PRODUCT: TRIENTINE HYDROCHLORIDE
Active Ingredient: TRIENTINE HYDROCHLORIDE
Strength: 250MG
Dosage Form/Route: CAPSULE;ORAL
Application: A211637 | Product #001
Applicant: LUPIN LTD
Approved: May 21, 2020 | RLD: No | RS: No | Type: DISCN